FAERS Safety Report 12483796 (Version 1)
Quarter: 2016Q2

REPORT INFORMATION
  Report Type: Report from Study
  Country: BR (occurrence: BR)
  Receive Date: 20160621
  Receipt Date: 20160621
  Transmission Date: 20160815
  Serious: Yes (Other)
  Sender: FDA-Public Use
  Company Number: PHHY2016BR084035

PATIENT
  Sex: Female
  Weight: 58 kg

DRUGS (1)
  1. ACLASTA [Suspect]
     Active Substance: ZOLEDRONIC ACID
     Indication: OSTEOPOROSIS
     Dosage: 5 MG, Q12MO
     Route: 042
     Dates: start: 201405

REACTIONS (6)
  - Fall [Unknown]
  - Weight decreased [Unknown]
  - Feeding disorder [Unknown]
  - Depression [Recovering/Resolving]
  - Spinal fracture [Unknown]
  - Malaise [Unknown]
